FAERS Safety Report 12862313 (Version 1)
Quarter: 2016Q4

REPORT INFORMATION
  Report Type: Spontaneous
  Country: US (occurrence: US)
  Receive Date: 20161018
  Receipt Date: 20161018
  Transmission Date: 20170207
  Serious: Yes (Life-Threatening, Hospitalization, Disabling, Other)
  Sender: FDA-Public Use
  Company Number: None

PATIENT
  Age: 90 Year
  Sex: Female
  Weight: 40.5 kg

DRUGS (3)
  1. XARELTO [Suspect]
     Active Substance: RIVAROXABAN
     Indication: CEREBROVASCULAR ACCIDENT PROPHYLAXIS
     Dosage: 1 TABLET DAILY ORAL?
     Route: 048
     Dates: start: 20151201, end: 20160925
  2. XARELTO [Suspect]
     Active Substance: RIVAROXABAN
     Indication: THROMBOSIS PROPHYLAXIS
     Dosage: 1 TABLET DAILY ORAL?
     Route: 048
     Dates: start: 20151201, end: 20160925
  3. MORPHINE [Concomitant]
     Active Substance: MORPHINE

REACTIONS (1)
  - Apparent death [None]

NARRATIVE: CASE EVENT DATE: 20160925
